FAERS Safety Report 5243718-3 (Version None)
Quarter: 2007Q1

REPORT INFORMATION
  Report Type: 
  Country: None (occurrence: None)
  Receive Date: 20070221
  Receipt Date: 20070221
  Transmission Date: 20070707
  Serious: No
  Sender: FDA-Public Use
  Company Number: None

PATIENT
  Age: 66 Year
  Sex: Male

DRUGS (1)
  1. ZITHROMAX [Suspect]
     Dosage: 500 MG  DAILY  IV PIGGYBACK
     Route: 042
     Dates: start: 20070217, end: 20070217

REACTIONS (2)
  - ERYTHEMA [None]
  - INFUSION RELATED REACTION [None]
